FAERS Safety Report 4518941-3 (Version None)
Quarter: 2004Q4

REPORT INFORMATION
  Report Type: 
  Country: None (occurrence: None)
  Receive Date: 20041203
  Receipt Date: 20041203
  Transmission Date: 20050328
  Serious: Yes (Disabling)
  Sender: FDA-Public Use
  Company Number: None

PATIENT
  Sex: Female

DRUGS (15)
  1. ALIMTA [Suspect]
     Indication: NON-SMALL CELL LUNG CANCER METASTATIC
     Dosage: GIVEN Q2 WEEKS
     Dates: start: 20040712
  2. GEMCITABINE PER PROTOCOL H3EUSJMGC [Suspect]
     Indication: NON-SMALL CELL LUNG CANCER METASTATIC
     Dosage: DOSE UNKNOWN
     Dates: start: 20041103
  3. ALPRAZOLAM [Concomitant]
  4. PAROXETINE HCL [Concomitant]
  5. DEXAMETHASONE [Concomitant]
  6. ATENOLOL [Concomitant]
  7. LIPITOR [Concomitant]
  8. PROCHLORPERAZINE MALEATE [Concomitant]
  9. ATIVAN [Concomitant]
  10. ZOFRAN [Concomitant]
  11. FOLIC ACID [Concomitant]
  12. TRAZODONE HCL [Concomitant]
  13. MULTIPLE VITAMIN [Concomitant]
  14. CALCUM/VITAMIN D [Concomitant]
  15. VITAMIN C [Concomitant]

REACTIONS (6)
  - BALANCE DISORDER [None]
  - DIZZINESS [None]
  - DYSGEUSIA [None]
  - HEARING IMPAIRED [None]
  - NEUROTOXICITY [None]
  - SWELLING FACE [None]
